FAERS Safety Report 5428894-1 (Version None)
Quarter: 2007Q3

REPORT INFORMATION
  Report Type: 
  Country: None (occurrence: None)
  Receive Date: 20070824
  Receipt Date: 20070821
  Transmission Date: 20080115
  Serious: Yes (Hospitalization)
  Sender: FDA-Public Use
  Company Number: 2007SP016878

PATIENT
  Age: 78 Year
  Sex: Female

DRUGS (5)
  1. TEMODAR [Suspect]
     Indication: MALIGNANT MELANOMA
     Dates: start: 20070501, end: 20070519
  2. TEMODAR [Suspect]
     Indication: MALIGNANT MELANOMA
     Dates: start: 20070601, end: 20070621
  3. TEMODAR [Suspect]
     Indication: MALIGNANT MELANOMA
     Dates: end: 20070708
  4. NEXAVAR [Suspect]
     Indication: MALIGNANT MELANOMA
     Dosage: 400 MG; BID; PO
     Route: 048
     Dates: start: 20070619, end: 20070621
  5. NEXAVAR [Suspect]
     Indication: MALIGNANT MELANOMA
     Dosage: 400 MG; BID; PO
     Route: 048
     Dates: start: 20070625, end: 20070708

REACTIONS (13)
  - BLOOD POTASSIUM INCREASED [None]
  - DECREASED APPETITE [None]
  - DEHYDRATION [None]
  - DIZZINESS [None]
  - DYSGEUSIA [None]
  - ERYTHEMA [None]
  - FATIGUE [None]
  - NAUSEA [None]
  - PARAESTHESIA [None]
  - PERIPHERAL COLDNESS [None]
  - PRURITUS [None]
  - PULMONARY OEDEMA [None]
  - SWELLING [None]
